FAERS Safety Report 14586871 (Version 1)
Quarter: 2018Q1

REPORT INFORMATION
  Report Type: Spontaneous
  Country: US (occurrence: US)
  Receive Date: 20180301
  Receipt Date: 20180301
  Transmission Date: 20180509
  Serious: Yes (Hospitalization, Other)
  Sender: FDA-Public Use
  Company Number: US-RECKITT BENCKISER HEALTHCARE INT LIMITED-RB-82767-2018

PATIENT
  Age: 29 Year
  Sex: Female

DRUGS (6)
  1. BUPRENORPHINE. [Concomitant]
     Active Substance: BUPRENORPHINE
     Indication: PRODUCT USED FOR UNKNOWN INDICATION
     Dosage: UNK
     Route: 065
  2. ALCOHOL. [Suspect]
     Active Substance: ALCOHOL
     Indication: DRUG ABUSE
     Dosage: USED ROUGHLY FOR 6 MONTHS
     Route: 065
  3. MUCINEX DM MAXIMUM STRENGTH [Suspect]
     Active Substance: DEXTROMETHORPHAN HYDROBROMIDE\GUAIFENESIN
     Indication: DRUG ABUSE
     Dosage: 9 DF, PROVIDING 1620 MG/DAY OF DXM TOTAL
     Route: 048
  4. MIRTAZAPINE. [Concomitant]
     Active Substance: MIRTAZAPINE
     Indication: DEPRESSION
     Dosage: 15 MG, UNK, TOOK THE PRODUCT NIGHTLY
     Route: 065
  5. CORICIDIN HBP COUGH AND COLD [Suspect]
     Active Substance: CHLORPHENIRAMINE MALEATE\DEXTROMETHORPHAN HYDROBROMIDE
     Indication: DRUG ABUSE
     Dosage: 12 DF, PROVIDING 1080 MG/DAY OF DXM TOTAL
     Route: 048
  6. MARIJUANA [Suspect]
     Active Substance: CANNABIS SATIVA SUBSP. INDICA TOP
     Indication: DRUG ABUSE
     Dosage: USED ROUGHLY FOR 6 MONTHS
     Route: 065

REACTIONS (14)
  - Psychiatric decompensation [Recovered/Resolved]
  - Illogical thinking [Recovered/Resolved]
  - Hostility [Recovered/Resolved]
  - Substance-induced psychotic disorder [Recovered/Resolved]
  - Abnormal dreams [Recovered/Resolved]
  - Suspiciousness [Recovered/Resolved]
  - Affect lability [Recovered/Resolved]
  - Delusion [Recovered/Resolved]
  - Intentional overdose [Recovered/Resolved]
  - Irritability [Recovered/Resolved]
  - Inappropriate affect [Recovered/Resolved]
  - Road traffic accident [Recovered/Resolved]
  - Pre-existing disease [Recovered/Resolved]
  - Drug abuse [Recovered/Resolved]
